FAERS Safety Report 17005743 (Version 1)
Quarter: 2019Q4

REPORT INFORMATION
  Report Type: Spontaneous
  Country: US (occurrence: US)
  Receive Date: 20191107
  Receipt Date: 20191107
  Transmission Date: 20200122
  Serious: Yes (Hospitalization)
  Sender: FDA-Public Use
  Company Number: US-TEVA-2019-US-1132322

PATIENT
  Sex: Female
  Weight: 66 kg

DRUGS (5)
  1. VYVANSE [Concomitant]
     Active Substance: LISDEXAMFETAMINE DIMESYLATE
  2. GEODON [Concomitant]
     Active Substance: ZIPRASIDONE HYDROCHLORIDE\ZIPRASIDONE MESYLATE
  3. CLOZAPINE. [Suspect]
     Active Substance: CLOZAPINE
     Route: 065
     Dates: start: 201906
  4. SERTRALINE [Concomitant]
     Active Substance: SERTRALINE HYDROCHLORIDE
  5. ROBINUL [Concomitant]
     Active Substance: GLYCOPYRROLATE
     Indication: GASTROINTESTINAL DISORDER

REACTIONS (4)
  - Neutrophil count increased [Unknown]
  - Suicidal ideation [Unknown]
  - Extrapyramidal disorder [Unknown]
  - Blood chloride increased [Unknown]
